FAERS Safety Report 8041003-8 (Version None)
Quarter: 2012Q1

REPORT INFORMATION
  Report Type: 
  Country: None (occurrence: None)
  Receive Date: 20120112
  Receipt Date: 20120106
  Transmission Date: 20120608
  Serious: No
  Sender: FDA-Public Use
  Company Number: US-BIOGENIDEC-2012BI000876

PATIENT
  Age: 29 Year
  Sex: Female

DRUGS (2)
  1. TYSABRI [Suspect]
     Indication: MULTIPLE SCLEROSIS
     Route: 042
     Dates: start: 20100916
  2. BENADRYL [Concomitant]
     Indication: PREMEDICATION

REACTIONS (8)
  - POOR VENOUS ACCESS [None]
  - HEADACHE [None]
  - FEELING ABNORMAL [None]
  - FATIGUE [None]
  - HYPERHIDROSIS [None]
  - SOMNOLENCE [None]
  - MYALGIA [None]
  - URTICARIA [None]
